FAERS Safety Report 6184399-4 (Version None)
Quarter: 2009Q2

REPORT INFORMATION
  Report Type: 
  Country: None (occurrence: None)
  Receive Date: 20090508
  Receipt Date: 20090430
  Transmission Date: 20091009
  Serious: Yes (Hospitalization)
  Sender: FDA-Public Use
  Company Number: B0568601A

PATIENT
  Sex: Female

DRUGS (4)
  1. REQUIP [Suspect]
     Indication: PARKINSON'S DISEASE
     Route: 048
     Dates: start: 20090203
  2. MENESIT [Concomitant]
     Dosage: 500MG PER DAY
     Route: 048
  3. COMTAN [Concomitant]
     Dosage: 400MG PER DAY
     Route: 048
  4. CABASER [Concomitant]
     Dosage: 1MG PER DAY
     Route: 048

REACTIONS (2)
  - SOMNOLENCE [None]
  - SUDDEN ONSET OF SLEEP [None]
